FAERS Safety Report 12697259 (Version 1)
Quarter: 2016Q3

REPORT INFORMATION
  Report Type: Spontaneous
  Country: US (occurrence: None)
  Receive Date: 20160829
  Receipt Date: 20160829
  Transmission Date: 20161109
  Serious: Yes (Life-Threatening, Hospitalization)
  Sender: FDA-Public Use
  Company Number: None

PATIENT
  Age: 57 Year
  Sex: Female
  Weight: 57 kg

DRUGS (13)
  1. DARBEPOETIN ALFA-POLYSORBATE [Concomitant]
  2. PEPCID [Concomitant]
     Active Substance: FAMOTIDINE
  3. SODIUM CHLORIDE FLUSH [Concomitant]
  4. SODIUM CHLORIDE. [Concomitant]
     Active Substance: SODIUM CHLORIDE
  5. CEFEPIME [Concomitant]
     Active Substance: CEFEPIME HYDROCHLORIDE
  6. HEPARIN [Suspect]
     Active Substance: HEPARIN SODIUM
     Indication: ANTICOAGULANT THERAPY
     Route: 041
     Dates: start: 20160808, end: 20160819
  7. VANCOMYCIN [Concomitant]
     Active Substance: VANCOMYCIN
  8. FERROUS SULFATE. [Concomitant]
     Active Substance: FERROUS SULFATE
  9. LEVETIRACETAM. [Concomitant]
     Active Substance: LEVETIRACETAM
  10. MULTIVITAMIN [Concomitant]
     Active Substance: VITAMINS
  11. FOLIC ACID. [Concomitant]
     Active Substance: FOLIC ACID
  12. WARFARIN [Concomitant]
     Active Substance: WARFARIN
  13. ALLOPURINOL. [Concomitant]
     Active Substance: ALLOPURINOL

REACTIONS (11)
  - Acute respiratory failure [None]
  - Somnolence [None]
  - Metabolic acidosis [None]
  - Acute kidney injury [None]
  - Haematoma [None]
  - Delirium [None]
  - Depression [None]
  - Dyspnoea [None]
  - Flat affect [None]
  - Thrombocytopenia [None]
  - International normalised ratio increased [None]

NARRATIVE: CASE EVENT DATE: 20160819
